FAERS Safety Report 8083219-0 (Version None)
Quarter: 2012Q1

REPORT INFORMATION
  Report Type: 
  Country: None (occurrence: None)
  Receive Date: 20120127
  Receipt Date: 20110321
  Transmission Date: 20120608
  Serious: No
  Sender: FDA-Public Use
  Company Number: US-ABBOTT-11P-163-0708963-00

PATIENT
  Age: 25 Year
  Sex: Male

DRUGS (2)
  1. HUMIRA [Suspect]
     Indication: CROHN'S DISEASE
     Dates: start: 20100101
  2. GENERIC FOR PRILOSEC [Concomitant]
     Indication: GASTROOESOPHAGEAL REFLUX DISEASE

REACTIONS (6)
  - SINUS DISORDER [None]
  - VISUAL IMPAIRMENT [None]
  - EXTRAOCULAR MUSCLE PARESIS [None]
  - SINUS HEADACHE [None]
  - MIGRAINE [None]
  - VISION BLURRED [None]
